FAERS Safety Report 12645106 (Version 11)
Quarter: 2017Q1

REPORT INFORMATION
  Report Type: Spontaneous
  Country: US (occurrence: US)
  Receive Date: 20160811
  Receipt Date: 20170310
  Transmission Date: 20170428
  Serious: Yes (Congenital Anomaly, Other)
  Sender: FDA-Public Use
  Company Number: PHHY2015US129885

PATIENT
  Sex: Male

DRUGS (2)
  1. ZOFRAN [Suspect]
     Active Substance: ONDANSETRON HYDROCHLORIDE
     Indication: FOETAL EXPOSURE DURING PREGNANCY
     Dosage: MOTHER^S DOSE: 8 MG/4 MG/4 MG, UNK
     Route: 064
  2. ONDANSETRON [Suspect]
     Active Substance: ONDANSETRON
     Indication: FOETAL EXPOSURE DURING PREGNANCY
     Dosage: MOTHER^S DOSE: 4 MG, UNK
     Route: 064

REACTIONS (32)
  - Left-to-right cardiac shunt [Unknown]
  - Cardiomegaly [Unknown]
  - Palatal disorder [Unknown]
  - Deafness [Unknown]
  - Speech disorder developmental [Unknown]
  - Heart disease congenital [Unknown]
  - Ventricular septal defect [Unknown]
  - Cleft lip [Unknown]
  - Pulmonary hypertension [Unknown]
  - Ear infection [Unknown]
  - Atrial septal defect [Unknown]
  - Stickler^s syndrome [Unknown]
  - Foetal exposure during pregnancy [Unknown]
  - Mitral valve incompetence [Unknown]
  - Pulmonary oedema neonatal [Unknown]
  - Left atrial dilatation [Unknown]
  - Selective eating disorder [Unknown]
  - Tricuspid valve incompetence [Unknown]
  - Weight gain poor [Unknown]
  - Congenital anomaly [Unknown]
  - Neonatal pneumonia [Unknown]
  - Gastrooesophageal reflux disease [Unknown]
  - Failure to thrive [Unknown]
  - Right atrial dilatation [Unknown]
  - Micrognathia [Unknown]
  - Cleft palate [Unknown]
  - Craniofacial deformity [Unknown]
  - Cardiac failure [Unknown]
  - Musculoskeletal disorder [Unknown]
  - Myopia [Unknown]
  - Hypermobility syndrome [Unknown]
  - Cardiac murmur [Unknown]
